FAERS Safety Report 25723338 (Version 3)
Quarter: 2025Q4

REPORT INFORMATION
  Report Type: Spontaneous
  Country: KR (occurrence: KR)
  Receive Date: 20250825
  Receipt Date: 20251015
  Transmission Date: 20260118
  Serious: No
  Sender: PFIZER
  Company Number: KR-PFIZER INC-PV202500100852

PATIENT
  Age: 14 Year
  Sex: Female

DRUGS (1)
  1. GENOTROPIN [Suspect]
     Active Substance: SOMATROPIN
     Dosage: UNK
     Dates: start: 20240802

REACTIONS (5)
  - Wrong technique in device usage process [Unknown]
  - Injection site swelling [Unknown]
  - Injection site pain [Unknown]
  - Device physical property issue [Unknown]
  - Device leakage [Unknown]
